FAERS Safety Report 5812797-4 (Version None)
Quarter: 2008Q3

REPORT INFORMATION
  Report Type: 
  Country: None (occurrence: None)
  Receive Date: 20080714
  Receipt Date: 20080703
  Transmission Date: 20090109
  Serious: Yes (Other)
  Sender: FDA-Public Use
  Company Number: 163-21880-08060902

PATIENT
  Age: 59 Year
  Sex: Female

DRUGS (1)
  1. REVLIMID [Suspect]
     Indication: MULTIPLE MYELOMA
     Dosage: 25 MG, 1 IN 1 D, ORAL; 25 MG, 1 IN 1 D, ORAL
     Route: 048
     Dates: start: 20080229

REACTIONS (1)
  - HEPATOTOXICITY [None]
